FAERS Safety Report 8094482-4 (Version None)
Quarter: 2012Q1

REPORT INFORMATION
  Report Type: 
  Country: None (occurrence: None)
  Receive Date: 20120130
  Receipt Date: 20120116
  Transmission Date: 20120608
  Serious: No
  Sender: FDA-Public Use
  Company Number: FR-ELI_LILLY_AND_COMPANY-FR201111004545

PATIENT
  Age: 53 Year
  Sex: Female
  Weight: 96 kg

DRUGS (4)
  1. SOLIAN [Concomitant]
     Indication: HALLUCINATION, AUDITORY
     Dosage: 800 MG, QD
     Dates: start: 20081216
  2. ABILIFY [Concomitant]
     Indication: HALLUCINATION, AUDITORY
     Dosage: 20 MG, QD
     Route: 048
     Dates: start: 20080707
  3. ALPRAZOLAM [Concomitant]
     Indication: ANXIETY
     Dosage: 5 G, QD
     Dates: start: 20070103
  4. CYMBALTA [Suspect]
     Indication: DEPRESSION
     Dosage: 60 MG, QD
     Route: 048
     Dates: start: 20100215, end: 20100217

REACTIONS (3)
  - FACE OEDEMA [None]
  - RASH [None]
  - DYSPNOEA [None]
